FAERS Safety Report 20423330 (Version 1)
Quarter: 2022Q1

REPORT INFORMATION
  Report Type: Spontaneous
  Country: US (occurrence: US)
  Receive Date: 20220203
  Receipt Date: 20220203
  Transmission Date: 20220423
  Serious: Yes (Other)
  Sender: FDA-Public Use
  Company Number: US-TAKEDA-2022TUS007218

PATIENT
  Age: 4 Year
  Sex: Female

DRUGS (1)
  1. ENTYVIO [Suspect]
     Active Substance: VEDOLIZUMAB
     Indication: Crohn^s disease
     Dosage: UNK
     Route: 065

REACTIONS (6)
  - Intestinal ulcer [Unknown]
  - COVID-19 [Unknown]
  - Influenza [Unknown]
  - Condition aggravated [Unknown]
  - Therapy non-responder [Unknown]
  - Off label use [Unknown]
